FAERS Safety Report 9319276 (Version 2)
Quarter: 2013Q2

REPORT INFORMATION
  Report Type: Spontaneous
  Country: US (occurrence: None)
  Receive Date: 20130524
  Receipt Date: 20130628
  Transmission Date: 20140414
  Serious: Yes (Hospitalization)
  Sender: FDA-Public Use
  Company Number: AUR-APL-2013-04106

PATIENT
  Age: 60 Year
  Sex: Female
  Weight: 116 kg

DRUGS (5)
  1. METFORMIN [Suspect]
     Indication: BLOOD GLUCOSE INCREASED
  2. LIPITOR (ATORVASTATIN CALCIUM) [Suspect]
     Indication: BLOOD CHOLESTEROL INCREASED
     Dosage: (20 MG, 1 IN 1 D)
     Route: 048
  3. NORVASC (AMLODIPINE BESILATE) [Suspect]
     Indication: PRODUCT USED FOR UNKNOWN INDICATION
  4. NEURONTIN (GABAPENTIN) [Suspect]
     Indication: PRODUCT USED FOR UNKNOWN INDICATION
  5. BACLOFEN [Concomitant]

REACTIONS (5)
  - Gallbladder operation [None]
  - Blood triglycerides increased [None]
  - Blood glucose increased [None]
  - Diabetes mellitus [None]
  - Blood cholesterol increased [None]
